FAERS Safety Report 11310052 (Version 2)
Quarter: 2015Q3

REPORT INFORMATION
  Report Type: Spontaneous
  Country: US (occurrence: US)
  Receive Date: 20150724
  Receipt Date: 20150821
  Transmission Date: 20151125
  Serious: Yes (Hospitalization)
  Sender: FDA-Public Use
  Company Number: US-BRACCO-012373

PATIENT
  Age: 22 Year
  Sex: Female
  Weight: 53 kg

DRUGS (6)
  1. VYVANSE [Concomitant]
     Active Substance: LISDEXAMFETAMINE DIMESYLATE
  2. KINEVAC [Suspect]
     Active Substance: SINCALIDE
     Indication: HEPATOBILIARY SCAN
     Dosage: 1.1 MCG
     Route: 042
     Dates: start: 20150630, end: 20150630
  3. STERILE WATER [Concomitant]
     Active Substance: WATER
     Dates: start: 20150630, end: 20150630
  4. DULCOLAX [Concomitant]
     Active Substance: BISACODYL OR DOCUSATE SODIUM
  5. CARAFATE [Concomitant]
     Active Substance: SUCRALFATE
  6. PANTOPRAZOLE [Concomitant]
     Active Substance: PANTOPRAZOLE SODIUM

REACTIONS (4)
  - Product quality issue [Recovered/Resolved]
  - Nausea [Recovered/Resolved]
  - Chills [Recovered/Resolved]
  - Pyrexia [Recovered/Resolved]

NARRATIVE: CASE EVENT DATE: 20150630
